FAERS Safety Report 16770198 (Version 2)
Quarter: 2019Q3

REPORT INFORMATION
  Report Type: Spontaneous
  Country: US (occurrence: US)
  Receive Date: 20190904
  Receipt Date: 20190906
  Transmission Date: 20191005
  Serious: Yes (Hospitalization)
  Sender: FDA-Public Use
  Company Number: US-ROCHE-2392810

PATIENT
  Sex: Male

DRUGS (17)
  1. CEPHALEXIN [CEFALEXIN] [Concomitant]
     Active Substance: CEPHALEXIN
  2. ESOMEPRAZOLE. [Concomitant]
     Active Substance: ESOMEPRAZOLE MAGNESIUM
  3. PREDNISOLONE. [Concomitant]
     Active Substance: PREDNISOLONE
  4. SODIUM CHLORIDE. [Concomitant]
     Active Substance: SODIUM CHLORIDE
  5. CLINDAMYCIN. [Concomitant]
     Active Substance: CLINDAMYCIN
  6. ALBUTEROL [SALBUTAMOL] [Concomitant]
     Active Substance: ALBUTEROL
  7. SPORANOX [Concomitant]
     Active Substance: ITRACONAZOLE
  8. ADVAIR HFA [Concomitant]
     Active Substance: FLUTICASONE PROPIONATE\SALMETEROL XINAFOATE
  9. CREON [Concomitant]
     Active Substance: PANCRELIPASE AMYLASE\PANCRELIPASE LIPASE\PANCRELIPASE PROTEASE
  10. CYPROHEPTADINE. [Concomitant]
     Active Substance: CYPROHEPTADINE
  11. XOLAIR [Suspect]
     Active Substance: OMALIZUMAB
     Indication: CYSTIC FIBROSIS
     Route: 058
     Dates: start: 20150129
  12. XOLAIR [Suspect]
     Active Substance: OMALIZUMAB
     Route: 058
     Dates: start: 20190628
  13. CIPROFLOXACIN. [Concomitant]
     Active Substance: CIPROFLOXACIN
  14. DRONABINOL. [Concomitant]
     Active Substance: DRONABINOL
  15. TOBI [Concomitant]
     Active Substance: TOBRAMYCIN
  16. PULMOZYME [Suspect]
     Active Substance: DORNASE ALFA
     Indication: PRODUCT USED FOR UNKNOWN INDICATION
     Route: 065
  17. ORKAMBI [Concomitant]
     Active Substance: IVACAFTOR\LUMACAFTOR

REACTIONS (1)
  - Migraine [Unknown]

NARRATIVE: CASE EVENT DATE: 2019
